FAERS Safety Report 25284956 (Version 2)
Quarter: 2025Q3

REPORT INFORMATION
  Report Type: Spontaneous
  Country: JP (occurrence: JP)
  Receive Date: 20250508
  Receipt Date: 20250723
  Transmission Date: 20251021
  Serious: Yes (Life-Threatening)
  Sender: BRISTOL-MYERS SQUIBB COMPANY
  Company Number: JP-BRISTOL-MYERS SQUIBB COMPANY-2025-065965

PATIENT

DRUGS (2)
  1. YERVOY [Suspect]
     Active Substance: IPILIMUMAB
     Indication: Oesophageal carcinoma recurrent
     Route: 041
     Dates: start: 20250108, end: 20250422
  2. OPDIVO [Suspect]
     Active Substance: NIVOLUMAB
     Indication: Oesophageal carcinoma recurrent
     Route: 041
     Dates: start: 20250108, end: 20250422

REACTIONS (5)
  - Extremity necrosis [Not Recovered/Not Resolved]
  - Liver function test increased [Unknown]
  - Insomnia [Unknown]
  - Depressed mood [Unknown]
  - White blood cell count increased [Unknown]
